FAERS Safety Report 11244197 (Version 1)
Quarter: 2015Q3

REPORT INFORMATION
  Report Type: Spontaneous
  Country: CA (occurrence: CA)
  Receive Date: 20150707
  Receipt Date: 20150707
  Transmission Date: 20151125
  Serious: Yes (Other)
  Sender: FDA-Public Use
  Company Number: CA-HOSPIRA-2699692

PATIENT

DRUGS (2)
  1. DEXTROSE. [Suspect]
     Active Substance: DEXTROSE
     Indication: MEDICATION DILUTION
     Route: 065
  2. FLUOROURACIL. [Suspect]
     Active Substance: FLUOROURACIL
     Indication: CHEMOTHERAPY
     Route: 065

REACTIONS (4)
  - Device infusion issue [Unknown]
  - Wrong technique in product usage process [Unknown]
  - White blood cell count decreased [Unknown]
  - Overdose [Unknown]
